FAERS Safety Report 7605481-8 (Version None)
Quarter: 2011Q3

REPORT INFORMATION
  Report Type: 
  Country: None (occurrence: None)
  Receive Date: 20110713
  Receipt Date: 20110709
  Transmission Date: 20111222
  Serious: No
  Sender: FDA-Public Use
  Company Number: US-PFIZER INC-2011154803

PATIENT
  Sex: Female

DRUGS (3)
  1. CELEBREX [Concomitant]
     Dosage: UNK
  2. NEURONTIN [Concomitant]
     Dosage: UNK
  3. DEPO-PROVERA [Suspect]
     Dosage: UNK
     Dates: start: 20110708

REACTIONS (1)
  - RASH [None]
